FAERS Safety Report 12215854 (Version 1)
Quarter: 2016Q1

REPORT INFORMATION
  Report Type: Spontaneous
  Country: US (occurrence: US)
  Receive Date: 20160328
  Receipt Date: 20160328
  Transmission Date: 20160526
  Serious: No
  Sender: FDA-Public Use
  Company Number: US-009507513-1603USA005661

PATIENT
  Sex: Male

DRUGS (1)
  1. PEGINTRON [Suspect]
     Active Substance: PEGINTERFERON ALFA-2B
     Indication: PEYRONIE^S DISEASE
     Dosage: 2 MILLION U, EVERY 2 WEEKS; INTRALESIONAL INJECTION

REACTIONS (1)
  - Product use issue [Unknown]
